FAERS Safety Report 7297944-2 (Version None)
Quarter: 2011Q1

REPORT INFORMATION
  Report Type: 
  Country: None (occurrence: None)
  Receive Date: 20110217
  Receipt Date: 20110203
  Transmission Date: 20110831
  Serious: Yes (Other)
  Sender: FDA-Public Use
  Company Number: US-BAYER-2011-011045

PATIENT
  Sex: Female

DRUGS (1)
  1. AVELOX [Suspect]
     Dosage: UNK

REACTIONS (9)
  - ANXIETY [None]
  - HALLUCINATION [None]
  - HEART RATE INCREASED [None]
  - DEPRESSION [None]
  - MYALGIA [None]
  - ERYTHEMA [None]
  - ARTHRALGIA [None]
  - CRYING [None]
  - INSOMNIA [None]
